FAERS Safety Report 10243690 (Version 1)
Quarter: 2014Q2

REPORT INFORMATION
  Report Type: Spontaneous
  Country: US (occurrence: US)
  Receive Date: 20140618
  Receipt Date: 20140618
  Transmission Date: 20141212
  Serious: No
  Sender: FDA-Public Use
  Company Number: US-009507513-1405USA003922

PATIENT
  Sex: Male

DRUGS (1)
  1. LOTRIMIN AF JOCK ITCH [Suspect]
     Indication: EAR INFECTION FUNGAL
     Dosage: UNK, UNKNOWN
     Route: 061

REACTIONS (3)
  - Therapeutic response changed [Unknown]
  - Drug administered at inappropriate site [Unknown]
  - Off label use [Unknown]
